FAERS Safety Report 5508613-0 (Version None)
Quarter: 2007Q4

REPORT INFORMATION
  Report Type: 
  Country: None (occurrence: None)
  Receive Date: 20071107
  Receipt Date: 20071105
  Transmission Date: 20080405
  Serious: Yes (Other)
  Sender: FDA-Public Use
  Company Number: FR-BRISTOL-MYERS SQUIBB COMPANY-13960497

PATIENT
  Age: 58 Year
  Sex: Male

DRUGS (3)
  1. PACLITAXEL [Suspect]
     Indication: SQUAMOUS CELL CARCINOMA
     Dosage: 8-WEEK CYCLES OF PACLITAXEL 80 MG/M SUP(2), WEEKLY PACLITAXEL 50MG/M SUP(2)
  2. AMIFOSTINE [Suspect]
  3. RADIATION THERAPY [Suspect]
     Indication: SQUAMOUS CELL CARCINOMA

REACTIONS (4)
  - DERMATITIS [None]
  - RECALL PHENOMENON [None]
  - STOMATITIS [None]
  - WEIGHT DECREASED [None]
